FAERS Safety Report 10022012 (Version 1)
Quarter: 2014Q1

REPORT INFORMATION
  Report Type: Spontaneous
  Country: US (occurrence: US)
  Receive Date: 20140319
  Receipt Date: 20140319
  Transmission Date: 20141002
  Serious: Yes (Death, Hospitalization)
  Sender: FDA-Public Use
  Company Number: US-ROCHE-1363045

PATIENT
  Age: 34 Year
  Sex: Female
  Weight: 77.23 kg

DRUGS (14)
  1. HERCEPTIN [Suspect]
     Indication: BREAST CANCER
     Route: 065
  2. KADCYLA [Suspect]
     Indication: PRODUCT USED FOR UNKNOWN INDICATION
     Route: 065
  3. TYKERB [Suspect]
     Indication: PRODUCT USED FOR UNKNOWN INDICATION
     Route: 048
     Dates: start: 20131015, end: 20140101
  4. XGEVA [Suspect]
     Indication: PRODUCT USED FOR UNKNOWN INDICATION
     Route: 065
  5. ABRAXANE [Suspect]
     Indication: PRODUCT USED FOR UNKNOWN INDICATION
     Route: 065
  6. NAVELBINE [Suspect]
     Indication: PRODUCT USED FOR UNKNOWN INDICATION
     Route: 065
  7. DOCUSATE SODIUM [Concomitant]
  8. DEXAMETHASONE [Concomitant]
  9. OMEPRAZOLE [Concomitant]
  10. COLACE [Concomitant]
  11. PACLITAXEL [Concomitant]
  12. NORCO [Concomitant]
  13. PRILOSEC [Concomitant]
  14. VINORELBINE TARTRATE [Concomitant]

REACTIONS (11)
  - Breast cancer metastatic [Fatal]
  - Hepatic enzyme increased [Fatal]
  - Vertigo [Unknown]
  - Nausea [Unknown]
  - Dizziness [Unknown]
  - Balance disorder [Unknown]
  - Muscular weakness [Unknown]
  - Ascites [Unknown]
  - Deafness unilateral [Unknown]
  - Hydrocephalus [Unknown]
  - Hypoaesthesia [Unknown]
